FAERS Safety Report 10377670 (Version 1)
Quarter: 2014Q3

REPORT INFORMATION
  Report Type: Report from Study
  Country: BR (occurrence: BR)
  Receive Date: 20140812
  Receipt Date: 20140812
  Transmission Date: 20150326
  Serious: Yes (Hospitalization, Other)
  Sender: FDA-Public Use
  Company Number: PHHY2014BR099160

PATIENT
  Sex: Male

DRUGS (5)
  1. DRUG THERAPY NOS [Concomitant]
     Active Substance: UNSPECIFIED INGREDIENT
     Indication: THYROID DISORDER
     Dosage: UNK UKN, UNK
  2. EXELON PATCH [Suspect]
     Active Substance: RIVASTIGMINE
     Indication: MEMORY IMPAIRMENT
     Dosage: 1 DF, DAILY
     Route: 062
     Dates: start: 20140619
  3. EXELON PATCH [Suspect]
     Active Substance: RIVASTIGMINE
     Indication: BACK PAIN
  4. EXELON PATCH [Suspect]
     Active Substance: RIVASTIGMINE
     Indication: OFF LABEL USE
  5. EXELON PATCH [Suspect]
     Active Substance: RIVASTIGMINE
     Indication: DAYDREAMING

REACTIONS (3)
  - Abasia [Recovered/Resolved]
  - Memory impairment [Recovered/Resolved]
  - Blood sodium decreased [Recovered/Resolved]
